FAERS Safety Report 6385726-5 (Version None)
Quarter: 2009Q4

REPORT INFORMATION
  Report Type: 
  Country: None (occurrence: None)
  Receive Date: 20091002
  Receipt Date: 20081002
  Transmission Date: 20100525
  Serious: No
  Sender: FDA-Public Use
  Company Number: US-ASTRAZENECA-2008UW21432

PATIENT
  Age: 68 Year
  Sex: Female

DRUGS (3)
  1. ARIMIDEX [Suspect]
     Route: 048
     Dates: start: 20040101
  2. GLYBURIDE [Concomitant]
  3. COMBIVENT [Concomitant]
     Route: 055

REACTIONS (3)
  - BLOOD GLUCOSE INCREASED [None]
  - HOT FLUSH [None]
  - HYPERHIDROSIS [None]
